FAERS Safety Report 5711126-4 (Version None)
Quarter: 2008Q2

REPORT INFORMATION
  Report Type: 
  Country: None (occurrence: None)
  Receive Date: 20080415
  Receipt Date: 20080407
  Transmission Date: 20081010
  Serious: Yes (Life-Threatening, Hospitalization)
  Sender: FDA-Public Use
  Company Number: 390001M08FRA

PATIENT
  Age: 31 Year
  Sex: Female

DRUGS (3)
  1. CETROTIDE [Suspect]
     Indication: IN VITRO FERTILISATION
     Dosage: 0.25 MG, 1 IN 1 DAYS, SUBCUTANEOUS
     Route: 058
     Dates: start: 20070616, end: 20070624
  2. CHORIONIC GONADTROPIN [Suspect]
     Dosage: 10000 IU, INTRAMUSCULAR
     Route: 030
     Dates: start: 20070625, end: 20070625
  3. PUREGON (FOLLITROPIN BETA) [Suspect]
     Dosage: SUBCUTANEOUS
     Route: 058
     Dates: start: 20070616, end: 20070624

REACTIONS (8)
  - ABDOMINAL PAIN [None]
  - ASCITES [None]
  - HAEMATOCRIT INCREASED [None]
  - HAEMOCONCENTRATION [None]
  - HAEMOGLOBIN INCREASED [None]
  - OVARIAN HYPERSTIMULATION SYNDROME [None]
  - VOMITING [None]
  - WEIGHT DECREASED [None]
